FAERS Safety Report 10885892 (Version 1)
Quarter: 2015Q1

REPORT INFORMATION
  Report Type: Spontaneous
  Country: US (occurrence: US)
  Receive Date: 20150304
  Receipt Date: 20150304
  Transmission Date: 20150721
  Serious: Yes (Death)
  Sender: FDA-Public Use
  Company Number: US-BANPHARM-20153547

PATIENT
  Age: 40 Year
  Sex: Male

DRUGS (3)
  1. DIPHENHYDRAMINE UNKNOWN PRODUCT [Suspect]
     Active Substance: DIPHENHYDRAMINE
     Route: 051
  2. HEROIN [Suspect]
     Active Substance: DIACETYLMORPHINE
  3. FENTANYL. [Suspect]
     Active Substance: FENTANYL

REACTIONS (1)
  - Drug abuse [Fatal]
